FAERS Safety Report 11078431 (Version 1)
Quarter: 2015Q2

REPORT INFORMATION
  Report Type: Spontaneous
  Country: CN (occurrence: None)
  Receive Date: 20150428
  Receipt Date: 20150428
  Transmission Date: 20150821
  Serious: Yes (Hospitalization)
  Sender: FDA-Public Use
  Company Number: FK201501946

PATIENT
  Age: 58 Year
  Sex: Female

DRUGS (6)
  1. BEVACIZUMAB (BEVACIZUMAB) (BEVACIZUMAB) [Suspect]
     Active Substance: BEVACIZUMAB
     Indication: COLON CANCER
     Route: 042
  2. FLUOROURACIL (MANUFACTURER UNKNOWN) (FLUOROURACIL) (FLUOROURACIL) [Suspect]
     Active Substance: FLUOROURACIL
     Indication: COLON CANCER
     Dosage: 0.68, ON D1, REPEATED EVERY 2 WEEKS,
     Route: 040
  3. AMLODIPINE [Concomitant]
     Active Substance: AMLODIPINE BESYLATE
  4. SPIRONOLACTONE. [Concomitant]
     Active Substance: SPIRONOLACTONE
  5. OXALIPLATIN (MANUFACTURER UNKNOWN) (OXALIPLATIN) (OXALIPLATIN) [Suspect]
     Active Substance: OXALIPLATIN
     Indication: COLON CANCER
     Dosage: 150 MG, REPEATED EVERY 2 WEEKS
     Route: 042
  6. LEUCOVORIN CALCIUM (MANUFACTURER UNKNOWN) (LEUCOVORIN CALCIUM) (LEUCOVORIN CALCIUM) [Suspect]
     Active Substance: LEUCOVORIN CALCIUM
     Indication: COLON CANCER
     Dosage: 0.68, ON D1 REPEATED EVERY 2 WEEKS
     Route: 040

REACTIONS (6)
  - Blood pressure increased [None]
  - Coma [None]
  - Cerebral arteriosclerosis [None]
  - Cerebral atrophy [None]
  - Posterior reversible encephalopathy syndrome [None]
  - Lacunar infarction [None]
